FAERS Safety Report 5377834-2 (Version None)
Quarter: 2007Q3

REPORT INFORMATION
  Report Type: 
  Country: None (occurrence: None)
  Receive Date: 20070703
  Receipt Date: 20070622
  Transmission Date: 20080115
  Serious: Yes (Hospitalization)
  Sender: FDA-Public Use
  Company Number: JP-ELI_LILLY_AND_COMPANY-JP200706005327

PATIENT
  Sex: Female

DRUGS (1)
  1. EVISTA [Suspect]
     Dosage: UNK, UNK
     Route: 048
     Dates: start: 20060101

REACTIONS (1)
  - FRACTURE [None]
